FAERS Safety Report 12842196 (Version 2)
Quarter: 2016Q4

REPORT INFORMATION
  Report Type: Spontaneous
  Country: IT (occurrence: IT)
  Receive Date: 20161013
  Receipt Date: 20161102
  Transmission Date: 20170207
  Serious: Yes (Disabling)
  Sender: FDA-Public Use
  Company Number: IT-009507513-1610ITA004304

PATIENT
  Age: 78 Year
  Sex: Male
  Weight: 40 kg

DRUGS (3)
  1. INVANZ [Suspect]
     Active Substance: ERTAPENEM SODIUM
     Indication: SEPSIS
     Dosage: 1 G, QD
     Route: 042
     Dates: start: 20160916, end: 20160925
  2. MICAFUNGIN [Concomitant]
     Active Substance: MICAFUNGIN
     Dosage: UNK
     Route: 042
     Dates: start: 20160916, end: 20161004
  3. DAPTOMYCIN. [Concomitant]
     Active Substance: DAPTOMYCIN
     Dosage: UNK
     Route: 042
     Dates: start: 20160916, end: 20161004

REACTIONS (4)
  - Neurotoxicity [Recovered/Resolved]
  - Hallucination [Recovered/Resolved]
  - Psychomotor hyperactivity [Recovered/Resolved]
  - Illusion [Recovered/Resolved]

NARRATIVE: CASE EVENT DATE: 20160923
